FAERS Safety Report 23993660 (Version 1)
Quarter: 2024Q2

REPORT INFORMATION
  Report Type: Spontaneous
  Country: CN (occurrence: CN)
  Receive Date: 20240620
  Receipt Date: 20240620
  Transmission Date: 20240716
  Serious: Yes (Death)
  Sender: FDA-Public Use
  Company Number: CN-STRIDES ARCOLAB LIMITED-2024SP006982

PATIENT
  Age: 65 Year
  Sex: Male

DRUGS (2)
  1. ETOPOSIDE [Suspect]
     Active Substance: ETOPOSIDE
     Indication: Neuroendocrine carcinoma of prostate
     Dosage: 150 MILLIGRAM, QD (DAILY FOR 3 CONSECUTIVE DAYS) (RECEIVED 1 CYCLE)
     Route: 065
     Dates: start: 202309
  2. CISPLATIN [Suspect]
     Active Substance: CISPLATIN
     Indication: Neuroendocrine carcinoma of prostate
     Dosage: 50 MILLIGRAM, CYCLICAL (FOR 3 CONSECUTIVE DAYS) (RECEIVED 1 CYCLE)
     Route: 065
     Dates: start: 202309

REACTIONS (3)
  - Multiple organ dysfunction syndrome [Fatal]
  - Myelosuppression [Fatal]
  - Off label use [Unknown]

NARRATIVE: CASE EVENT DATE: 20230901
